FAERS Safety Report 11866462 (Version 2)
Quarter: 2015Q4

REPORT INFORMATION
  Report Type: Spontaneous
  Country: None (occurrence: US)
  Receive Date: 20151224
  Receipt Date: 20151230
  Transmission Date: 20160305
  Serious: Yes (Death)
  Sender: FDA-Public Use
  Company Number: US-ROCHE-1683566

PATIENT
  Age: 72 Year
  Sex: Female

DRUGS (1)
  1. ESBRIET [Suspect]
     Active Substance: PIRFENIDONE
     Indication: IDIOPATHIC PULMONARY FIBROSIS
     Route: 048
     Dates: start: 20150725, end: 20151211

REACTIONS (1)
  - Death [Fatal]

NARRATIVE: CASE EVENT DATE: 20151211
